FAERS Safety Report 18085084 (Version 1)
Quarter: 2020Q3

REPORT INFORMATION
  Report Type: Spontaneous
  Country: US (occurrence: US)
  Receive Date: 20200728
  Receipt Date: 20200728
  Transmission Date: 20201103
  Serious: Yes (Hospitalization)
  Sender: FDA-Public Use
  Company Number: None

PATIENT
  Age: 77 Year
  Sex: Male

DRUGS (1)
  1. FORTEO [Suspect]
     Active Substance: TERIPARATIDE
     Indication: OSTEOPOROSIS
     Route: 048
     Dates: start: 20200612

REACTIONS (3)
  - Rash [None]
  - Peripheral swelling [None]
  - Pyrexia [None]

NARRATIVE: CASE EVENT DATE: 20200703
